FAERS Safety Report 6971015-4 (Version None)
Quarter: 2010Q3

REPORT INFORMATION
  Report Type: 
  Country: None (occurrence: None)
  Receive Date: 20100908
  Receipt Date: 20100908
  Transmission Date: 20110219
  Serious: Yes (Death)
  Sender: FDA-Public Use
  Company Number: ZA-JNJFOC-20100901549

PATIENT
  Sex: Female

DRUGS (8)
  1. DURAGESIC-100 [Suspect]
     Indication: PRODUCT USED FOR UNKNOWN INDICATION
     Route: 062
  2. LISINOPRIL [Concomitant]
     Dosage: LISORETIC 10/12.5 MG
     Route: 065
  3. RIDAQ [Concomitant]
     Route: 065
  4. ATORVASTATIN [Concomitant]
     Route: 065
  5. BAYERS ASPIRIN [Concomitant]
     Route: 065
  6. AUTRIN [Concomitant]
     Route: 065
  7. CEFACLOR [Concomitant]
     Dosage: VERCEF 375MG/5ML
     Route: 065
  8. DEXTROMETHORPHAN HYDROBROMIDE [Concomitant]
     Route: 065

REACTIONS (1)
  - CONVULSION [None]
